FAERS Safety Report 21815037 (Version 1)
Quarter: 2023Q1

REPORT INFORMATION
  Report Type: Spontaneous
  Country: US (occurrence: US)
  Receive Date: 20230104
  Receipt Date: 20230104
  Transmission Date: 20230418
  Serious: No
  Sender: FDA-Public Use
  Company Number: US-MACLEODS PHARMACEUTICALS US LTD-MAC2022039010

PATIENT

DRUGS (6)
  1. RISEDRONATE SODIUM [Suspect]
     Active Substance: RISEDRONATE SODIUM
     Indication: Osteoporosis
     Dosage: 35 MILLIGRAM, Q.W. (35 MG 1 TABLET 1 X WEEK, NDC: 33342-109-37)
     Route: 065
     Dates: start: 20221219
  2. PHENOBARBITAL [Concomitant]
     Active Substance: PHENOBARBITAL
     Indication: Product used for unknown indication
     Dosage: UNK
     Route: 065
  3. BACLOFEN [Concomitant]
     Active Substance: BACLOFEN
     Indication: Product used for unknown indication
     Dosage: UNK
     Route: 065
  4. CETIRIZINE [Concomitant]
     Active Substance: CETIRIZINE HYDROCHLORIDE
     Indication: Product used for unknown indication
     Dosage: UNK
     Route: 065
  5. Vitamin D + calcium [Concomitant]
     Indication: Product used for unknown indication
     Dosage: UNK
     Route: 065
  6. Omega 3 supplements [Concomitant]
     Indication: Product used for unknown indication
     Dosage: UNK
     Route: 065

REACTIONS (2)
  - Oral herpes [Recovering/Resolving]
  - Rash [Recovering/Resolving]
